FAERS Safety Report 5466011-2 (Version None)
Quarter: 2007Q3

REPORT INFORMATION
  Report Type: 
  Country: None (occurrence: None)
  Receive Date: 20070924
  Receipt Date: 20070914
  Transmission Date: 20080115
  Serious: No
  Sender: FDA-Public Use
  Company Number: US-BOEHRINGER INGELHEIM PHARMACEUTICALS, INC.-2007-BP-21109BP

PATIENT
  Age: 72 Year
  Sex: Female

DRUGS (2)
  1. FLOMAX [Suspect]
     Indication: CYSTITIS INTERSTITIAL
     Route: 048
     Dates: start: 20070831
  2. DETROL LA [Suspect]
     Indication: CYSTITIS INTERSTITIAL

REACTIONS (1)
  - DRUG INEFFECTIVE [None]
